FAERS Safety Report 9786655 (Version 1)
Quarter: 2013Q4

REPORT INFORMATION
  Report Type: Spontaneous
  Country: TW (occurrence: TW)
  Receive Date: 20131227
  Receipt Date: 20131227
  Transmission Date: 20140711
  Serious: Yes (Death, Hospitalization)
  Sender: FDA-Public Use
  Company Number: TW-MYLANLABS-2013S1028482

PATIENT
  Age: 47 Year
  Sex: Male

DRUGS (8)
  1. CLOZAPINE [Suspect]
     Indication: SCHIZOPHRENIA
     Dosage: CROSS-TITRATED FROM AMISULPRIDE; INITIAL DOSE 25MG/DAY; INCREASED TO 50MG/DAY ON D2
     Route: 065
  2. CLOZAPINE [Suspect]
     Indication: SCHIZOPHRENIA
     Dosage: 50MG/DAY; INCREASED TO 100MG/DAY ON D3
     Route: 065
  3. CLOZAPINE [Suspect]
     Indication: SCHIZOPHRENIA
     Dosage: 100MG/DAY; INCREASED TO 200MG/DAY ON D4
     Route: 065
  4. CLOZAPINE [Suspect]
     Indication: SCHIZOPHRENIA
     Dosage: 200MG/DAY
     Route: 065
  5. VALPROIC ACID [Concomitant]
     Indication: SCHIZOPHRENIA
     Dosage: 800MG/DAY; INCREASED TO 1200MG/DAY
     Route: 065
  6. VALPROIC ACID [Concomitant]
     Indication: SCHIZOPHRENIA
     Dosage: 1200MG/DAY; INCREASED TO 1500MG/DAY
     Route: 065
  7. VALPROIC ACID [Concomitant]
     Indication: SCHIZOPHRENIA
     Dosage: 1500MG/DAY
     Route: 065
  8. AMISULPRIDE [Concomitant]
     Indication: SCHIZOPHRENIA
     Dosage: CROSS-TITRATED TO CLOZAPINE
     Route: 065

REACTIONS (4)
  - Intestinal infarction [Fatal]
  - Sepsis [Fatal]
  - Metabolic acidosis [Not Recovered/Not Resolved]
  - Peritonitis bacterial [Not Recovered/Not Resolved]
